FAERS Safety Report 5158398-5 (Version None)
Quarter: 2006Q4

REPORT INFORMATION
  Report Type: 
  Country: None (occurrence: None)
  Receive Date: 20061121
  Receipt Date: 20061121
  Transmission Date: 20070319
  Serious: Yes (Life-Threatening, Hospitalization)
  Sender: FDA-Public Use
  Company Number: None

PATIENT
  Age: 75 Year
  Sex: Female
  Weight: 47.7 kg

DRUGS (9)
  1. FLEETS PHOSPHO-SODA [Suspect]
     Indication: DRUG THERAPY
     Dosage: 45ML ONE TIME DOSE PO 1 NIGHT
     Route: 048
  2. AZITHROMYCIN [Concomitant]
  3. ANZEMET [Concomitant]
  4. FUROSEMIDE [Concomitant]
  5. HEPARIN [Concomitant]
  6. HYDROCORTISONE [Concomitant]
  7. METOPROLOL SUCCINATE [Concomitant]
  8. MORPHINE [Concomitant]
  9. ZOSYN [Concomitant]

REACTIONS (8)
  - BLOOD CREATININE INCREASED [None]
  - BLOOD PHOSPHORUS INCREASED [None]
  - DIALYSIS [None]
  - HYDRONEPHROSIS [None]
  - HYPERPHOSPHATAEMIA [None]
  - NEPHROPATHY [None]
  - RENAL FAILURE [None]
  - RENAL IMPAIRMENT [None]
